FAERS Safety Report 12975305 (Version 1)
Quarter: 2016Q4

REPORT INFORMATION
  Report Type: Spontaneous
  Country: US (occurrence: US)
  Receive Date: 20161124
  Receipt Date: 20161124
  Transmission Date: 20170207
  Serious: No
  Sender: FDA-Public Use
  Company Number: None

PATIENT
  Age: 69 Year
  Sex: Female
  Weight: 63 kg

DRUGS (2)
  1. CLINDAMYCIN. [Suspect]
     Active Substance: CLINDAMYCIN
  2. PANTOPRAZOLE 40 MG TABLETS AUROBINDO [Suspect]
     Active Substance: PANTOPRAZOLE SODIUM
     Indication: GASTROOESOPHAGEAL REFLUX DISEASE
     Dosage: ?          QUANTITY:1 TABLET(S);?
     Route: 048
     Dates: start: 20161123, end: 20161124

REACTIONS (5)
  - Abdominal distension [None]
  - Visual impairment [None]
  - Flatulence [None]
  - Tinnitus [None]
  - Abdominal pain upper [None]

NARRATIVE: CASE EVENT DATE: 20161123
